FAERS Safety Report 9320966 (Version 3)
Quarter: 2013Q4

REPORT INFORMATION
  Report Type: Spontaneous
  Country: US (occurrence: US)
  Receive Date: 20130531
  Receipt Date: 20131002
  Transmission Date: 20140711
  Serious: No
  Sender: FDA-Public Use
  Company Number: US-PFIZER INC-2013165062

PATIENT
  Age: 63 Year
  Sex: Female

DRUGS (5)
  1. EFFEXOR XR [Suspect]
     Dosage: UNK
     Dates: start: 2004
  2. EFFEXOR [Suspect]
     Dosage: 150 MG, UNK
  3. PREMPRO [Suspect]
     Dosage: UNK
  4. ZOCOR [Suspect]
     Dosage: UNK
  5. PRAVACHOL [Suspect]
     Dosage: UNK

REACTIONS (1)
  - Drug hypersensitivity [Unknown]
